FAERS Safety Report 15309940 (Version 1)
Quarter: 2018Q3

REPORT INFORMATION
  Report Type: Spontaneous
  Country: US (occurrence: US)
  Receive Date: 20180813
  Receipt Date: 20180813
  Transmission Date: 20181010
  Serious: Yes (Disabling)
  Sender: FDA-Public Use
  Company Number: None

PATIENT
  Age: 71 Year
  Sex: Female
  Weight: 66.6 kg

DRUGS (4)
  1. LEVOFLOXACIN TAB 500MG ^AMEL^ [Suspect]
     Active Substance: LEVOFLOXACIN
     Indication: SINUSITIS
     Dosage: ?          QUANTITY:10 TABLET(S);?
     Route: 048
     Dates: start: 20180802, end: 20180804
  2. SYNTHROID [Concomitant]
     Active Substance: LEVOTHYROXINE SODIUM
  3. PROBIOTIC [Concomitant]
     Active Substance: PROBIOTICS NOS
  4. CIPROFLOXACIN TAB 500 MG [Suspect]
     Active Substance: CIPROFLOXACIN
     Indication: GINGIVITIS
     Dosage: ?          QUANTITY:14 TABLET(S);?
     Route: 048
     Dates: start: 20180216, end: 20180222

REACTIONS (10)
  - Chills [None]
  - Paraesthesia [None]
  - Skin burning sensation [None]
  - Depression [None]
  - Dizziness [None]
  - Nausea [None]
  - Insomnia [None]
  - Cold sweat [None]
  - Hyperhidrosis [None]
  - Anxiety [None]

NARRATIVE: CASE EVENT DATE: 20180724
